FAERS Safety Report 17457349 (Version 1)
Quarter: 2020Q1

REPORT INFORMATION
  Report Type: Report from Study
  Country: None (occurrence: CO)
  Receive Date: 20200225
  Receipt Date: 20200225
  Transmission Date: 20200409
  Serious: Yes (Hospitalization)
  Sender: FDA-Public Use
  Company Number: CO-ABBVIE-20K-036-3291716-00

PATIENT
  Age: 6 Month
  Sex: Female
  Weight: 6 kg

DRUGS (1)
  1. SYNAGIS [Suspect]
     Active Substance: PALIVIZUMAB
     Indication: PREMATURE BABY
     Route: 030
     Dates: start: 20190903, end: 20200121

REACTIONS (4)
  - Snoring [Recovering/Resolving]
  - Cough [Recovering/Resolving]
  - Asthmatic crisis [Recovering/Resolving]
  - Secretion discharge [Recovering/Resolving]

NARRATIVE: CASE EVENT DATE: 20200217
